FAERS Safety Report 5026381-6 (Version None)
Quarter: 2006Q2

REPORT INFORMATION
  Report Type: 
  Country: None (occurrence: None)
  Receive Date: 20060426
  Receipt Date: 20051230
  Transmission Date: 20061013
  Serious: Yes (Other)
  Sender: FDA-Public Use
  Company Number: 2006002333

PATIENT
  Age: 44 Year
  Sex: Male
  Weight: 131.5431 kg

DRUGS (3)
  1. LYRICA [Suspect]
     Indication: NEUROPATHY
     Dosage: 150 MG (75 MG, 2 IN 1 D)
     Dates: start: 20051201
  2. MULTIVITAMIN [Concomitant]
  3. EXCEDRIN P.M. (DIPHENHYDRAMINE CITRATE, PARACETAMOL) [Concomitant]

REACTIONS (2)
  - HEADACHE [None]
  - NIGHT SWEATS [None]
